FAERS Safety Report 4829335-5 (Version None)
Quarter: 2005Q4

REPORT INFORMATION
  Report Type: 
  Country: None (occurrence: None)
  Receive Date: 20051115
  Receipt Date: 20051115
  Transmission Date: 20060501
  Serious: Yes (Hospitalization)
  Sender: FDA-Public Use
  Company Number: None

PATIENT
  Sex: Male
  Weight: 107.9561 kg

DRUGS (6)
  1. TERAZOSIN   5MG [Suspect]
     Indication: BENIGN PROSTATIC HYPERPLASIA
     Dosage: 5MG    DAILY AT BEDTIME   PO
     Route: 048
     Dates: start: 20050816, end: 20050816
  2. LISINOPRIL [Concomitant]
  3. WARFARIN [Concomitant]
  4. AMIODARONE [Concomitant]
  5. LOVASTATIN [Concomitant]
  6. FUROSEMIDE [Concomitant]

REACTIONS (3)
  - BLOOD PRESSURE DECREASED [None]
  - DIZZINESS [None]
  - DRUG ADMINISTRATION ERROR [None]
